FAERS Safety Report 12386594 (Version 2)
Quarter: 2016Q2

REPORT INFORMATION
  Report Type: Spontaneous
  Country: IN (occurrence: IN)
  Receive Date: 20160519
  Receipt Date: 20160628
  Transmission Date: 20160815
  Serious: Yes (Hospitalization, Other)
  Sender: FDA-Public Use
  Company Number: IN-WATSON-2016-10195

PATIENT
  Age: 4 Year
  Sex: Male
  Weight: 11 kg

DRUGS (3)
  1. PHENOBARBITAL (UNKNOWN) [Interacting]
     Active Substance: PHENOBARBITAL
     Indication: PRODUCT USED FOR UNKNOWN INDICATION
     Dosage: UNKNOWN
     Route: 065
  2. LAMOTRIGINE (UNKNOWN) [Suspect]
     Active Substance: LAMOTRIGINE
     Indication: CEREBRAL PALSY
     Dosage: IN TWO DIVIDED DOSES, BETWEEN WEEKS 1 AND 4
     Route: 065
  3. LAMOTRIGINE (UNKNOWN) [Interacting]
     Active Substance: LAMOTRIGINE
     Indication: SEIZURE

REACTIONS (3)
  - Drug interaction [Unknown]
  - Drug reaction with eosinophilia and systemic symptoms [Recovering/Resolving]
  - Drug dose titration not performed [Unknown]
